FAERS Safety Report 18429179 (Version 2)
Quarter: 2022Q2

REPORT INFORMATION
  Report Type: Spontaneous
  Country: US (occurrence: US)
  Receive Date: 20201027
  Receipt Date: 20220527
  Transmission Date: 20220721
  Serious: Yes (Other)
  Sender: FDA-Public Use
  Company Number: US-SAARTEMIS-SAC202010160121

PATIENT
  Age: 32 Year
  Sex: Male

DRUGS (1)
  1. ZANTAC [Suspect]
     Active Substance: RANITIDINE HYDROCHLORIDE
     Dosage: 150 MG, FREQUENCY : OTHER
     Dates: start: 199501, end: 201912

REACTIONS (4)
  - Lung neoplasm malignant [Unknown]
  - Testis cancer [Unknown]
  - Brain neoplasm malignant [Unknown]
  - Neoplasm malignant [Unknown]

NARRATIVE: CASE EVENT DATE: 19990101
